FAERS Safety Report 21768872 (Version 1)
Quarter: 2022Q4

REPORT INFORMATION
  Report Type: Spontaneous
  Country: None (occurrence: FR)
  Receive Date: 20221222
  Receipt Date: 20221222
  Transmission Date: 20230112
  Serious: Yes (Other)
  Sender: FDA-Public Use
  Company Number: FR-AFSSAPS-BS20221501

PATIENT
  Age: 67 Year
  Sex: Male
  Weight: 52 kg

DRUGS (1)
  1. OXYGEN [Suspect]
     Active Substance: OXYGEN
     Indication: Acute respiratory failure
     Route: 055
     Dates: start: 20220824, end: 20221125

REACTIONS (2)
  - Thermal burn [Recovering/Resolving]
  - Thermal burn [Recovering/Resolving]

NARRATIVE: CASE EVENT DATE: 20221125
